FAERS Safety Report 14313786 (Version 2)
Quarter: 2018Q3

REPORT INFORMATION
  Report Type: Spontaneous
  Country: HR (occurrence: HR)
  Receive Date: 20171221
  Receipt Date: 20180709
  Transmission Date: 20181010
  Serious: Yes (Hospitalization)
  Sender: FDA-Public Use
  Company Number: PHHY2017HR190500

PATIENT
  Age: 55 Year
  Sex: Male

DRUGS (5)
  1. RISPERIDONE. [Suspect]
     Active Substance: RISPERIDONE
     Indication: SCHIZOPHRENIA
     Dosage: 4 MG, UNK
     Route: 048
  2. RISPOLEPT CONSTA [Suspect]
     Active Substance: RISPERIDONE
     Indication: SCHIZOPHRENIA
     Dosage: 50 MG, Q2W
     Route: 065
     Dates: start: 20130117, end: 201308
  3. QUETIAPINE. [Suspect]
     Active Substance: QUETIAPINE
     Indication: SCHIZOPHRENIA
     Dosage: 150 MG, QD
     Route: 065
     Dates: start: 20130117, end: 201308
  4. DIAZEPAM. [Suspect]
     Active Substance: DIAZEPAM
     Indication: SCHIZOPHRENIA
     Dosage: 5 MG, UNK
     Route: 065
  5. ZOLPIDEM [Suspect]
     Active Substance: ZOLPIDEM\ZOLPIDEM TARTRATE
     Indication: SCHIZOPHRENIA
     Dosage: 10 TO 20 MG
     Route: 065

REACTIONS (1)
  - Schizophrenia [Recovered/Resolved]

NARRATIVE: CASE EVENT DATE: 201310
